FAERS Safety Report 17764696 (Version 1)
Quarter: 2020Q2

REPORT INFORMATION
  Report Type: Spontaneous
  Country: IT (occurrence: IT)
  Receive Date: 20200511
  Receipt Date: 20200511
  Transmission Date: 20200714
  Serious: Yes (Other)
  Sender: FDA-Public Use
  Company Number: IT-ROCHE-2595568

PATIENT
  Age: 47 Year
  Sex: Female
  Weight: 90 kg

DRUGS (2)
  1. RIVOTRIL [Suspect]
     Active Substance: CLONAZEPAM
     Indication: PRODUCT USED FOR UNKNOWN INDICATION
     Route: 065
  2. HALDOL [Suspect]
     Active Substance: HALOPERIDOL
     Indication: PRODUCT USED FOR UNKNOWN INDICATION
     Route: 048
     Dates: start: 20200312

REACTIONS (3)
  - Intentional self-injury [Unknown]
  - Intentional product misuse [Unknown]
  - Sluggishness [Unknown]

NARRATIVE: CASE EVENT DATE: 20200312
